FAERS Safety Report 12174128 (Version 1)
Quarter: 2016Q1

REPORT INFORMATION
  Report Type: Report from Study
  Country: NL (occurrence: NL)
  Receive Date: 20160314
  Receipt Date: 20160314
  Transmission Date: 20160526
  Serious: Yes (Hospitalization)
  Sender: FDA-Public Use
  Company Number: NL-AMGEN-NLDSL2016030689

PATIENT
  Age: 51 Year
  Sex: Female

DRUGS (2)
  1. XGEVA [Suspect]
     Active Substance: DENOSUMAB
     Indication: PRODUCT USED FOR UNKNOWN INDICATION
     Dosage: 1.7 ML, (120 MG), Q4WK
     Route: 058
     Dates: start: 20131009
  2. ZOLADEX [Concomitant]
     Active Substance: GOSERELIN ACETATE

REACTIONS (1)
  - Wound [Unknown]

NARRATIVE: CASE EVENT DATE: 20160305
